FAERS Safety Report 19388960 (Version 1)
Quarter: 2021Q2

REPORT INFORMATION
  Report Type: Report from Study
  Country: US (occurrence: US)
  Receive Date: 20210608
  Receipt Date: 20210608
  Transmission Date: 20210717
  Serious: Yes (Other)
  Sender: FDA-Public Use
  Company Number: US-BAYER-2021-153153

PATIENT

DRUGS (5)
  1. CLOPIDOGREL [Interacting]
     Active Substance: CLOPIDOGREL BISULFATE
     Indication: THROMBOSIS PROPHYLAXIS
  2. ASPIRIN. [Interacting]
     Active Substance: ASPIRIN
     Indication: THROMBOSIS PROPHYLAXIS
  3. CLOPIDOGREL [Interacting]
     Active Substance: CLOPIDOGREL BISULFATE
     Indication: HIP ARTHROPLASTY
  4. ASPIRIN. [Suspect]
     Active Substance: ASPIRIN
     Indication: HIP ARTHROPLASTY
     Dosage: 81 MG, BID
  5. TORADOL [Interacting]
     Active Substance: KETOROLAC TROMETHAMINE
     Indication: HIP ARTHROPLASTY

REACTIONS (2)
  - Gastrointestinal haemorrhage [None]
  - Labelled drug-drug interaction medication error [None]
